FAERS Safety Report 9862307 (Version 2)
Quarter: 2014Q1

REPORT INFORMATION
  Report Type: Spontaneous
  Country: US (occurrence: US)
  Receive Date: 20140203
  Receipt Date: 20140203
  Transmission Date: 20141002
  Serious: Yes (Other)
  Sender: FDA-Public Use
  Company Number: US-PFIZER INC-2014025825

PATIENT
  Age: 15 Year
  Sex: Female
  Weight: 53 kg

DRUGS (1)
  1. DILANTIN [Suspect]
     Dosage: 300 MG, DAILY

REACTIONS (4)
  - Toxicity to various agents [Recovered/Resolved]
  - Drug level above therapeutic [Unknown]
  - Agranulocytosis [Recovered/Resolved]
  - Phagocytosis [Recovered/Resolved]
